FAERS Safety Report 5915565-8 (Version None)
Quarter: 2008Q4

REPORT INFORMATION
  Report Type: 
  Country: None (occurrence: None)
  Receive Date: 20081010
  Receipt Date: 20080806
  Transmission Date: 20090506
  Serious: No
  Sender: FDA-Public Use
  Company Number: A0742693A

PATIENT
  Age: 60 Year
  Sex: Female

DRUGS (3)
  1. TYKERB [Suspect]
     Dosage: 5TAB PER DAY
     Route: 048
     Dates: start: 20080802
  2. XELODA [Suspect]
     Route: 048
     Dates: start: 20080802
  3. RADIATION [Suspect]

REACTIONS (4)
  - CONSTIPATION [None]
  - COUGH [None]
  - DRY SKIN [None]
  - SKIN CHAPPED [None]
